APPROVED DRUG PRODUCT: OXYCODONE AND ACETAMINOPHEN
Active Ingredient: ACETAMINOPHEN; OXYCODONE HYDROCHLORIDE
Strength: 325MG;5MG
Dosage Form/Route: TABLET;ORAL
Application: A040203 | Product #001
Applicant: ACTAVIS ELIZABETH LLC
Approved: Mar 15, 1999 | RLD: No | RS: No | Type: DISCN